FAERS Safety Report 23247967 (Version 1)
Quarter: 2023Q4

REPORT INFORMATION
  Report Type: Spontaneous
  Country: US (occurrence: US)
  Receive Date: 20231130
  Receipt Date: 20231130
  Transmission Date: 20240110
  Serious: No
  Sender: FDA-Public Use
  Company Number: US-Covis Pharma GmbH-2023COV01855

PATIENT
  Age: 53 Year
  Sex: Female
  Weight: 56.81 kg

DRUGS (3)
  1. RILUZOLE [Suspect]
     Active Substance: RILUZOLE
     Route: 048
  2. RADICAVA [Suspect]
     Active Substance: EDARAVONE
     Indication: Amyotrophic lateral sclerosis
     Dosage: 14 DAYS ON, THEN 14 DAYS OFF
     Route: 048
     Dates: start: 20231022
  3. RELYVRIO [Suspect]
     Active Substance: SODIUM PHENYLBUTYRATE\TAURURSODIOL

REACTIONS (1)
  - Dizziness [Not Recovered/Not Resolved]
